FAERS Safety Report 15499472 (Version 1)
Quarter: 2018Q4

REPORT INFORMATION
  Report Type: Spontaneous
  Country: US (occurrence: US)
  Receive Date: 20181007
  Receipt Date: 20181007
  Transmission Date: 20190205
  Serious: Yes (Other)
  Sender: FDA-Public Use
  Company Number: None

PATIENT
  Age: 64 Year
  Sex: Female
  Weight: 60.75 kg

DRUGS (5)
  1. ATENOLOL. [Concomitant]
     Active Substance: ATENOLOL
  2. AZITHROMYCIN 500MG TABLET [Suspect]
     Active Substance: AZITHROMYCIN
     Indication: BRONCHITIS
     Dosage: ?          QUANTITY:1 TABLET(S);?
     Route: 048
     Dates: start: 20181004, end: 20181005
  3. MULTIVITAMINS [Concomitant]
     Active Substance: VITAMINS
  4. COQ10 [Concomitant]
     Active Substance: UBIDECARENONE
  5. LOW DOSE ASPIRIN (81MG) [Concomitant]

REACTIONS (2)
  - Heart rate irregular [None]
  - Hepatic pain [None]

NARRATIVE: CASE EVENT DATE: 20181004
